FAERS Safety Report 6863051-3 (Version None)
Quarter: 2010Q3

REPORT INFORMATION
  Report Type: 
  Country: None (occurrence: None)
  Receive Date: 20100721
  Receipt Date: 20100714
  Transmission Date: 20110219
  Serious: No
  Sender: FDA-Public Use
  Company Number: JP-MERCK-1007USA00228

PATIENT
  Age: 51 Year
  Sex: Female
  Weight: 53 kg

DRUGS (2)
  1. STROMECTOL [Suspect]
     Indication: PARASITIC INFECTION PROPHYLAXIS
     Route: 048
     Dates: start: 20090831, end: 20090831
  2. STROMECTOL [Suspect]
     Route: 048
     Dates: start: 20090907, end: 20090907

REACTIONS (1)
  - PROTEINURIA [None]
